FAERS Safety Report 7051645-4 (Version None)
Quarter: 2010Q4

REPORT INFORMATION
  Report Type: 
  Country: None (occurrence: None)
  Receive Date: 20101019
  Receipt Date: 20101008
  Transmission Date: 20110411
  Serious: Yes (Hospitalization)
  Sender: FDA-Public Use
  Company Number: FR-ROCHE-732444

PATIENT
  Sex: Male
  Weight: 75 kg

DRUGS (7)
  1. PEGINTERFERON ALFA-2A [Suspect]
     Dosage: LAST DOSE PRIOR TO SAE:01 JUNE 2010.  DOSAGE FORM: 135
     Route: 058
     Dates: start: 20090616
  2. MODOPAR [Concomitant]
     Dates: end: 20100612
  3. SOLIAN [Concomitant]
  4. DRIPTANE [Concomitant]
  5. LEPTICUR [Concomitant]
  6. DEPAKENE [Concomitant]
  7. ENTECAVIR [Concomitant]
     Dates: start: 20090721

REACTIONS (1)
  - FALL [None]
